FAERS Safety Report 9830088 (Version 3)
Quarter: 2014Q2

REPORT INFORMATION
  Report Type: Spontaneous
  Country: US (occurrence: US)
  Receive Date: 20140120
  Receipt Date: 20140507
  Transmission Date: 20141212
  Serious: Yes (Disabling)
  Sender: FDA-Public Use
  Company Number: US-009507513-1103USA03607

PATIENT
  Sex: Male
  Weight: 89.81 kg

DRUGS (4)
  1. PROPECIA [Suspect]
     Indication: ANDROGENETIC ALOPECIA
     Dosage: 1 MG, QD
     Route: 048
     Dates: start: 20070523, end: 200905
  2. PROPECIA [Suspect]
     Dosage: 1 MG, QD
     Route: 048
     Dates: end: 201005
  3. CITALOPRAM HYDROBROMIDE [Concomitant]
     Indication: DEPRESSION
     Dosage: 20 MG, QD
     Route: 048
     Dates: start: 2001, end: 20100830
  4. CITALOPRAM HYDROBROMIDE [Concomitant]
     Dosage: 10 MG, QD
     Route: 048
     Dates: start: 20100830

REACTIONS (30)
  - Emotional distress [Not Recovered/Not Resolved]
  - Semen volume decreased [Not Recovered/Not Resolved]
  - Libido decreased [Not Recovered/Not Resolved]
  - Abdominal pain [Recovering/Resolving]
  - Gastroenteritis viral [Recovering/Resolving]
  - Rectal haemorrhage [Recovered/Resolved]
  - Haemorrhoids [Unknown]
  - Anal fissure [Unknown]
  - Upper respiratory tract infection [Unknown]
  - Sinusitis [Unknown]
  - Otitis media [Unknown]
  - Fatigue [Unknown]
  - Malaise [Unknown]
  - Stress [Unknown]
  - Metabolic disorder [Unknown]
  - Overweight [Unknown]
  - Skin lesion [Unknown]
  - Foreign body in eye [Unknown]
  - Cellulitis [Unknown]
  - Subcutaneous abscess [Unknown]
  - Acrochordon [Unknown]
  - Fibrous histiocytoma [Unknown]
  - Melanocytic naevus [Unknown]
  - Tinea pedis [Unknown]
  - Anogenital warts [Not Recovered/Not Resolved]
  - Skin irritation [Unknown]
  - Drug intolerance [Unknown]
  - Melanocytic naevus [Unknown]
  - Seborrhoeic keratosis [Unknown]
  - Erectile dysfunction [Unknown]
